FAERS Safety Report 15184797 (Version 1)
Quarter: 2018Q3

REPORT INFORMATION
  Report Type: Spontaneous
  Country: US (occurrence: US)
  Receive Date: 20180723
  Receipt Date: 20180723
  Transmission Date: 20181010
  Serious: No
  Sender: FDA-Public Use
  Company Number: US-AMGEN-USASP2018087646

PATIENT
  Age: 76 Year
  Sex: Female
  Weight: 61.68 kg

DRUGS (2)
  1. REPATHA [Suspect]
     Active Substance: EVOLOCUMAB
     Indication: PRIMARY HYPERCHOLESTEROLAEMIA
     Dosage: 140 UNK, UNK
     Route: 065
     Dates: start: 20171212, end: 20180625
  2. REPATHA [Suspect]
     Active Substance: EVOLOCUMAB
     Indication: HYPERLIPIDAEMIA
     Dosage: 140 UNK, UNK
     Route: 065

REACTIONS (3)
  - Oedema mouth [Recovered/Resolved]
  - Headache [Recovered/Resolved]
  - Lip oedema [Recovered/Resolved]

NARRATIVE: CASE EVENT DATE: 20180628
